FAERS Safety Report 13012106 (Version 5)
Quarter: 2017Q2

REPORT INFORMATION
  Report Type: Report from Study
  Country: IT (occurrence: IT)
  Receive Date: 20161209
  Receipt Date: 20170530
  Transmission Date: 20170830
  Serious: Yes (Other)
  Sender: FDA-Public Use
  Company Number: PHHY2016IT081845

PATIENT
  Age: 63 Year
  Sex: Male

DRUGS (8)
  1. TASIGNA [Suspect]
     Active Substance: NILOTINIB
     Indication: CHRONIC MYELOID LEUKAEMIA
     Dosage: 600 MG, QD
     Route: 048
     Dates: start: 20140116, end: 20150626
  2. DUTASTERIDE. [Concomitant]
     Active Substance: DUTASTERIDE
     Indication: BENIGN PROSTATIC HYPERPLASIA
     Dosage: UNK
     Route: 065
     Dates: start: 201401
  3. DASATINIB [Suspect]
     Active Substance: DASATINIB
     Dosage: 100 MG, QD
     Route: 065
     Dates: start: 20151116, end: 20160414
  4. DASATINIB [Suspect]
     Active Substance: DASATINIB
     Dosage: 80 MG, QD
     Route: 065
     Dates: start: 20160420
  5. TAMSULOSINE [Concomitant]
     Active Substance: TAMSULOSIN HYDROCHLORIDE
     Indication: BENIGN PROSTATIC HYPERPLASIA
     Dosage: UNK
     Route: 065
     Dates: start: 201401
  6. KEPPRA [Concomitant]
     Active Substance: LEVETIRACETAM
     Indication: EPILEPSY
     Dosage: UNK
     Route: 065
     Dates: start: 201012, end: 201401
  7. LEVETIRACETAM. [Concomitant]
     Active Substance: LEVETIRACETAM
     Indication: EPILEPSY
     Dosage: UNK
     Route: 065
     Dates: start: 201401
  8. DASATINIB [Suspect]
     Active Substance: DASATINIB
     Indication: PRODUCT USED FOR UNKNOWN INDICATION
     Dosage: 100 MG, QD
     Route: 065
     Dates: start: 20150627, end: 20151106

REACTIONS (6)
  - Transaminases increased [Recovered/Resolved]
  - Lipase increased [Recovering/Resolving]
  - Bone pain [Unknown]
  - Rhinorrhoea [Unknown]
  - Amylase increased [Recovering/Resolving]
  - Fatigue [Unknown]

NARRATIVE: CASE EVENT DATE: 20150626
